FAERS Safety Report 25053364 (Version 1)
Quarter: 2025Q1

REPORT INFORMATION
  Report Type: Spontaneous
  Country: US (occurrence: US)
  Receive Date: 20250307
  Receipt Date: 20250307
  Transmission Date: 20250409
  Serious: No
  Sender: SANOFI AVENTIS
  Company Number: US-SA-2025SA064767

PATIENT
  Sex: Female

DRUGS (7)
  1. DUPIXENT [Suspect]
     Active Substance: DUPILUMAB
     Indication: Chronic kidney disease
     Dosage: 300 MG, QOW
     Route: 058
  2. TOPAMAX [Concomitant]
     Active Substance: TOPIRAMATE
  3. ADDERALL [Concomitant]
     Active Substance: AMPHETAMINE ASPARTATE\AMPHETAMINE SULFATE\DEXTROAMPHETAMINE SACCHARATE\DEXTROAMPHETAMINE SULFATE
  4. HYDROXYCHLOROQUINE [Concomitant]
     Active Substance: HYDROXYCHLOROQUINE
  5. KLONOPIN [Concomitant]
     Active Substance: CLONAZEPAM
  6. ROSUVASTATIN [Concomitant]
     Active Substance: ROSUVASTATIN
  7. SYNTHROID [Concomitant]
     Active Substance: LEVOTHYROXINE SODIUM

REACTIONS (6)
  - Blister [Unknown]
  - Skin burning sensation [Unknown]
  - Rash macular [Unknown]
  - Dry skin [Unknown]
  - Fatigue [Unknown]
  - Product use in unapproved indication [Unknown]
